FAERS Safety Report 18189321 (Version 1)
Quarter: 2020Q3

REPORT INFORMATION
  Report Type: Spontaneous
  Country: AU (occurrence: AU)
  Receive Date: 20200825
  Receipt Date: 20200825
  Transmission Date: 20201103
  Serious: Yes (Hospitalization, Other)
  Sender: FDA-Public Use
  Company Number: AU-SUN PHARMACEUTICAL INDUSTRIES LTD-2020RR-258350

PATIENT
  Age: 55 Year
  Sex: Female

DRUGS (7)
  1. ADRENALINE [Suspect]
     Active Substance: EPINEPHRINE
     Indication: DISTRIBUTIVE SHOCK
     Dosage: UNK
     Route: 042
  2. OXAZEPAM. [Suspect]
     Active Substance: OXAZEPAM
     Indication: PRODUCT USED FOR UNKNOWN INDICATION
     Dosage: 80 MILLIGRAM, UNK
     Route: 065
  3. OXYCODONE [Suspect]
     Active Substance: OXYCODONE
     Indication: PRODUCT USED FOR UNKNOWN INDICATION
     Dosage: 75 MILLIGRAM, UNK
     Route: 065
  4. M?CPP (META CHLOROPHENYLPIPERIZINE) [Suspect]
     Active Substance: META-CHLOROPHENYLPIPERAZINE
     Indication: PRODUCT USED FOR UNKNOWN INDICATION
     Dosage: BOTTLE CONCENTRATION 600 G/L
     Route: 065
  5. AMOXICILLIN/CLAVULANIC ACID [Suspect]
     Active Substance: AMOXICILLIN\CLAVULANIC ACID
     Indication: PNEUMONIA ASPIRATION
     Dosage: UNK
     Route: 065
  6. TEMAZEPAM. [Suspect]
     Active Substance: TEMAZEPAM
     Indication: PRODUCT USED FOR UNKNOWN INDICATION
     Dosage: 120 MILLIGRAM, UNK
     Route: 065
  7. PAROXETINE. [Suspect]
     Active Substance: PAROXETINE
     Indication: PRODUCT USED FOR UNKNOWN INDICATION
     Dosage: 1600 MILLIGRAM, UNK
     Route: 065

REACTIONS (8)
  - Condition aggravated [Unknown]
  - Distributive shock [Unknown]
  - Hyperthermia [Unknown]
  - Respiratory acidosis [Unknown]
  - Poisoning [Unknown]
  - Intentional overdose [Unknown]
  - Cardiac arrest [Unknown]
  - Hyperkalaemia [Unknown]
